FAERS Safety Report 9857356 (Version 3)
Quarter: 2014Q2

REPORT INFORMATION
  Report Type: Report from Study
  Country: BR (occurrence: BR)
  Receive Date: 20140130
  Receipt Date: 20140509
  Transmission Date: 20141212
  Serious: Yes (Hospitalization, Other)
  Sender: FDA-Public Use
  Company Number: BR-ROCHE-1341481

PATIENT
  Sex: Female
  Weight: 68 kg

DRUGS (2)
  1. MABTHERA [Suspect]
     Indication: RHEUMATOID ARTHRITIS
     Dosage: LAST INFUSION ON 04/AUG/2013
     Route: 065
     Dates: start: 20130720
  2. TRILEPTAL [Concomitant]

REACTIONS (5)
  - Brain neoplasm [Unknown]
  - Graft infection [Unknown]
  - Transplant rejection [Recovering/Resolving]
  - Convulsion [Not Recovered/Not Resolved]
  - Arthralgia [Not Recovered/Not Resolved]
